FAERS Safety Report 13332834 (Version 1)
Quarter: 2017Q1

REPORT INFORMATION
  Report Type: Report from Study
  Country: None (occurrence: US)
  Receive Date: 20170313
  Receipt Date: 20170313
  Transmission Date: 20170428
  Serious: Yes (Other)
  Sender: FDA-Public Use
  Company Number: US-ABBVIE-17P-163-1900747-00

PATIENT
  Sex: Female

DRUGS (1)
  1. LUPRON DEPOT [Suspect]
     Active Substance: LEUPROLIDE ACETATE
     Indication: ENDOMETRIOSIS
     Route: 050

REACTIONS (4)
  - Abdominal pain [Not Recovered/Not Resolved]
  - Hysterectomy [Unknown]
  - Endometriosis [Recovering/Resolving]
  - Small intestinal obstruction [Not Recovered/Not Resolved]

NARRATIVE: CASE EVENT DATE: 2015
